FAERS Safety Report 8127936-2 (Version None)
Quarter: 2012Q1

REPORT INFORMATION
  Report Type: 
  Country: None (occurrence: None)
  Receive Date: 20120210
  Receipt Date: 20120130
  Transmission Date: 20120608
  Serious: Yes (Hospitalization, Other)
  Sender: FDA-Public Use
  Company Number: ES-SANOFI-AVENTIS-2012SA006624

PATIENT
  Age: 56 Year
  Sex: Male

DRUGS (1)
  1. DRONEDARONE HCL [Suspect]
     Route: 048
     Dates: start: 20120113, end: 20120129

REACTIONS (5)
  - BLOOD CREATININE INCREASED [None]
  - BLOOD UREA INCREASED [None]
  - RENAL FAILURE ACUTE [None]
  - TOXICITY TO VARIOUS AGENTS [None]
  - FATIGUE [None]
